FAERS Safety Report 7468561-6 (Version None)
Quarter: 2011Q2

REPORT INFORMATION
  Report Type: 
  Country: None (occurrence: None)
  Receive Date: 20110509
  Receipt Date: 20110506
  Transmission Date: 20111010
  Serious: Yes (Other)
  Sender: FDA-Public Use
  Company Number: GB-BRISTOL-MYERS SQUIBB COMPANY-15628779

PATIENT
  Age: 65 Year
  Sex: Female
  Weight: 63 kg

DRUGS (12)
  1. LORAZEPAM [Concomitant]
  2. ARIPIPRAZOLE [Suspect]
     Indication: PSYCHOTIC DISORDER
     Route: 048
     Dates: start: 20101202, end: 20110131
  3. LANSOPRAZOLE [Concomitant]
     Indication: OESOPHAGITIS
     Route: 048
  4. METFORMIN HCL [Concomitant]
     Indication: DIABETES MELLITUS
  5. TRIHEXYPHENIDYL [Concomitant]
     Indication: CONSTIPATION
     Route: 048
  6. CLOZARIL [Suspect]
     Indication: PSYCHOTIC DISORDER
     Route: 048
     Dates: start: 20101108, end: 20110120
  7. SENNA [Concomitant]
     Indication: CONSTIPATION
     Route: 048
  8. FERROUS FUMARATE [Concomitant]
     Indication: ANAEMIA
     Route: 048
  9. HALOPERIDOL [Concomitant]
     Indication: PSYCHOTIC DISORDER
     Route: 048
  10. ZOPICLONE [Concomitant]
  11. ZUCLOPENTHIXOL DECANOATE [Concomitant]
     Indication: PSYCHOTIC DISORDER
     Route: 030
  12. LACTULOSE [Concomitant]
     Indication: CONSTIPATION

REACTIONS (2)
  - DIABETES MELLITUS [None]
  - HAEMOGLOBIN DECREASED [None]
